FAERS Safety Report 9171662 (Version 1)
Quarter: 2013Q1

REPORT INFORMATION
  Report Type: Spontaneous
  Country: DE (occurrence: None)
  Receive Date: 20130130
  Receipt Date: 20130130
  Transmission Date: 20140127
  Serious: Yes (Other)
  Sender: FDA-Public Use
  Company Number: 2013034544

PATIENT
  Age: 42 Year
  Sex: Female

DRUGS (1)
  1. HAEMATE P  (ANTIHEMOPHILIC FACTOR (HUMAN) VWF, DRIED, PASTEURIZED) [Suspect]
     Indication: VON WILLEBRAND^S DISEASE
     Dosage: 2000  IU  PRN,  NI,  NI?INTRAVENOUS (NOT OTHERWISE SPECIFIED)
     Route: 042

REACTIONS (2)
  - Hypersensitivity [None]
  - Hypertension [None]
